FAERS Safety Report 4849344-X (Version None)
Quarter: 2005Q4

REPORT INFORMATION
  Report Type: 
  Country: None (occurrence: None)
  Receive Date: 20051207
  Receipt Date: 20051128
  Transmission Date: 20060501
  Serious: Yes (Other)
  Sender: FDA-Public Use
  Company Number: 2005141513

PATIENT
  Age: 11 Year
  Sex: Male

DRUGS (3)
  1. GEODON [Suspect]
     Indication: AUTISM
     Dosage: 80 MG (2 IN 1 D),
     Dates: start: 20050907, end: 20051012
  2. GEODON [Suspect]
     Indication: OBESITY
     Dosage: 80 MG (2 IN 1 D),
     Dates: start: 20050907, end: 20051012
  3. CLONIDINE [Suspect]
     Indication: INSOMNIA
     Dosage: 0.2 MG (0.2 MG, 1 IN 1 D), ORAL
     Route: 048
     Dates: start: 20050912, end: 20051012

REACTIONS (3)
  - ELECTROCARDIOGRAM QT CORRECTED INTERVAL PROLONGED [None]
  - ELECTROCARDIOGRAM T WAVE ABNORMAL [None]
  - INSOMNIA [None]
